FAERS Safety Report 5006488-X (Version None)
Quarter: 2006Q2

REPORT INFORMATION
  Report Type: 
  Country: None (occurrence: None)
  Receive Date: 20060516
  Receipt Date: 20060426
  Transmission Date: 20061013
  Serious: Yes (Other)
  Sender: FDA-Public Use
  Company Number: CN200604002491

PATIENT
  Age: 51 Year
  Sex: Female
  Weight: 46.5 kg

DRUGS (1)
  1. EVISTA [Suspect]
     Indication: OSTEOPOROSIS POSTMENOPAUSAL
     Dosage: 60 MG, DAILY (1/D), ORAL
     Route: 048
     Dates: start: 20060317

REACTIONS (2)
  - UTERINE LEIOMYOMA [None]
  - VAGINAL HAEMORRHAGE [None]
